FAERS Safety Report 25215200 (Version 5)
Quarter: 2025Q3

REPORT INFORMATION
  Report Type: Report from Study
  Country: US (occurrence: US)
  Receive Date: 20250418
  Receipt Date: 20250806
  Transmission Date: 20251020
  Serious: Yes (Other)
  Sender: ELI LILLY AND COMPANY
  Company Number: US-ELI_LILLY_AND_COMPANY-US202504011457

PATIENT
  Age: 79 Year
  Sex: Male

DRUGS (1)
  1. KISUNLA [Suspect]
     Active Substance: DONANEMAB-AZBT
     Indication: Product used for unknown indication
     Route: 065
     Dates: start: 20250304

REACTIONS (6)
  - Brain oedema [Recovering/Resolving]
  - Cerebral haemorrhage [Recovering/Resolving]
  - Amyloid related imaging abnormalities [Recovering/Resolving]
  - Petechiae [Recovering/Resolving]
  - Blood glucose decreased [Unknown]
  - Headache [Unknown]
